FAERS Safety Report 25927300 (Version 1)
Quarter: 2025Q4

REPORT INFORMATION
  Report Type: Spontaneous
  Country: EU (occurrence: EU)
  Receive Date: 20251015
  Receipt Date: 20251015
  Transmission Date: 20260117
  Serious: Yes (Other)
  Sender: SANOFI AVENTIS
  Company Number: None

PATIENT
  Age: 71 Year
  Sex: Male

DRUGS (2)
  1. RASBURICASE [Suspect]
     Active Substance: RASBURICASE
     Indication: Hyperuricaemia
     Dosage: 7.5 MG, QD (SINGLE 7.5 MG DOSE ADMINISTERED IN DILUTED INFUSION OF SODIUM CHLORIDE 0.45 MG/ML)
     Route: 042
     Dates: start: 20250926, end: 20250926
  2. SODIUM CHLORIDE [Concomitant]
     Active Substance: SODIUM CHLORIDE
     Dosage: UNK (USED FOR DILUTION OF THE SUSPECTED DRUG)

REACTIONS (5)
  - Tremor [Recovered/Resolved]
  - Hypertension [Recovered/Resolved]
  - Oxygen saturation decreased [Recovered/Resolved]
  - Tachycardia [Recovered/Resolved]
  - Hypoperfusion [Recovered/Resolved]

NARRATIVE: CASE EVENT DATE: 20250926
